FAERS Safety Report 10156785 (Version 1)
Quarter: 2014Q2

REPORT INFORMATION
  Report Type: Spontaneous
  Country: US (occurrence: None)
  Receive Date: 20140506
  Receipt Date: 20140506
  Transmission Date: 20141212
  Serious: Yes (Other)
  Sender: FDA-Public Use
  Company Number: None

PATIENT
  Age: 73 Year
  Sex: Male

DRUGS (3)
  1. ZYTIGA [Suspect]
     Dosage: 250 MG X 4 TABS (1000 MG TOTAL) QD PO
  2. METFORMIN HCL POWDER [Concomitant]
  3. PREDNISONE [Concomitant]

REACTIONS (4)
  - Hot flush [None]
  - Spinal pain [None]
  - Bone pain [None]
  - Pain [None]
